FAERS Safety Report 16765519 (Version 1)
Quarter: 2019Q3

REPORT INFORMATION
  Report Type: Spontaneous
  Country: US (occurrence: US)
  Receive Date: 20190903
  Receipt Date: 20190903
  Transmission Date: 20191005
  Serious: No
  Sender: FDA-Public Use
  Company Number: US-009507513-1908USA009933

PATIENT
  Age: 30 Year
  Sex: Female

DRUGS (4)
  1. GANIRELIX ACETATE INJECTION [Suspect]
     Active Substance: GANIRELIX ACETATE
     Dosage: DAILY, W/7 DOSE
     Route: 058
     Dates: start: 20190731
  2. OVIDREL [Concomitant]
     Active Substance: CHORIOGONADOTROPIN ALFA
  3. FOLLISTIM AQ [Suspect]
     Active Substance: FOLLITROPIN
     Indication: INFERTILITY
     Dosage: 75 TO 450 UNITS, DAILY 8-12 DAYS
     Route: 058
     Dates: start: 20190731
  4. PROGESTERONE. [Concomitant]
     Active Substance: PROGESTERONE

REACTIONS (1)
  - Muscle spasms [Not Recovered/Not Resolved]

NARRATIVE: CASE EVENT DATE: 20190801
